FAERS Safety Report 15664098 (Version 1)
Quarter: 2018Q4

REPORT INFORMATION
  Report Type: Spontaneous
  Country: FR (occurrence: FR)
  Receive Date: 20181128
  Receipt Date: 20181128
  Transmission Date: 20190205
  Serious: Yes (Hospitalization)
  Sender: FDA-Public Use
  Company Number: FR-AUROBINDO-AUR-APL-2018-057079

PATIENT
  Age: 17 Year
  Sex: Female

DRUGS (5)
  1. DAFALGAN [Suspect]
     Active Substance: ACETAMINOPHEN
     Indication: SUICIDE ATTEMPT
     Dosage: 10 DOSAGE FORM, TOTAL, 10CP
     Route: 048
     Dates: start: 20180916, end: 20180916
  2. PARACETAMOL [Suspect]
     Active Substance: ACETAMINOPHEN
     Indication: SUICIDE ATTEMPT
     Dosage: 6 DOSAGE FORM, TOTAL,6 CP
     Route: 048
     Dates: start: 20180916, end: 20180916
  3. SPIFEN [Suspect]
     Active Substance: IBUPROFEN
     Indication: SUICIDE ATTEMPT
     Dosage: 12 DOSAGE FORM, TOTAL, 12 CP
     Route: 048
     Dates: start: 20180916, end: 20180916
  4. STRESAM [Suspect]
     Active Substance: ETIFOXINE
     Indication: SUICIDE ATTEMPT
     Dosage: 20 DOSAGE FORM, TOTAL, 20 CP
     Route: 048
     Dates: start: 20180916, end: 20180916
  5. XANAX [Suspect]
     Active Substance: ALPRAZOLAM
     Indication: SUICIDE ATTEMPT
     Dosage: 4 DOSAGE FORM, TOTAL
     Route: 048
     Dates: start: 20180916, end: 20180916

REACTIONS (4)
  - Vomiting [Recovered/Resolved]
  - Somnolence [Recovered/Resolved]
  - Nausea [Recovered/Resolved]
  - Toxicity to various agents [Recovered/Resolved]

NARRATIVE: CASE EVENT DATE: 20180916
